FAERS Safety Report 8721134 (Version 3)
Quarter: 2012Q4

REPORT INFORMATION
  Report Type: 
  Country: US (occurrence: US)
  Receive Date: 20120813
  Receipt Date: 20121011
  Transmission Date: 20130627
  Serious: No
  Sender: FDA-Public Use
  Company Number: US-PFIZER INC-2012193757

PATIENT
  Age: 65 Year
  Sex: Female
  Weight: 82 kg

DRUGS (6)
  1. LYRICA [Suspect]
     Indication: PAIN
     Dosage: 50 mg, 1x/day
     Route: 048
     Dates: start: 20120810, end: 201208
  2. LYRICA [Suspect]
     Indication: HERPES ZOSTER
     Dosage: 50 mg, 2x/day
     Route: 048
     Dates: start: 201208, end: 2012
  3. LYRICA [Suspect]
     Dosage: 50 mg, 3x/day
  4. TRAMADOL HCL [Suspect]
     Indication: HERPES ZOSTER
     Dosage: UNK
     Dates: start: 20120729
  5. TRAMADOL HCL [Suspect]
     Dosage: 50 mg, 3x/day
     Dates: end: 2012
  6. HYDROCODONE W/ACETAMINOPHEN [Suspect]
     Indication: HERPES ZOSTER
     Dosage: UNK
     Dates: start: 20120726, end: 2012

REACTIONS (6)
  - Drug ineffective [Recovered/Resolved]
  - Nervousness [Recovered/Resolved]
  - Dysarthria [Recovered/Resolved]
  - Nausea [Recovered/Resolved]
  - Somnolence [Recovered/Resolved]
  - Decreased appetite [Recovered/Resolved]
